FAERS Safety Report 4351473-4 (Version None)
Quarter: 2004Q2

REPORT INFORMATION
  Report Type: 
  Country: None (occurrence: None)
  Receive Date: 20040430
  Receipt Date: 20040430
  Transmission Date: 20050107
  Serious: Yes (Death)
  Sender: FDA-Public Use
  Company Number: None

PATIENT
  Sex: Male
  Weight: 111.5849 kg

DRUGS (2)
  1. BUSPAR [Suspect]
     Indication: DYSPNOEA
     Dosage: TWICE A DA ORAL
     Route: 048
     Dates: start: 20040406, end: 20040418
  2. PLACEBO [Suspect]
     Indication: DYSPNOEA
     Dosage: TWICE A DA
     Dates: start: 20040406, end: 20040418

REACTIONS (6)
  - ATRIAL FIBRILLATION [None]
  - CHILLS [None]
  - DISEASE PROGRESSION [None]
  - INFECTION [None]
  - PNEUMONIA [None]
  - RESPIRATORY DISORDER [None]
